FAERS Safety Report 6750127-4 (Version None)
Quarter: 2010Q2

REPORT INFORMATION
  Report Type: 
  Country: None (occurrence: None)
  Receive Date: 20100601
  Receipt Date: 20100521
  Transmission Date: 20101027
  Serious: Yes (Other)
  Sender: FDA-Public Use
  Company Number: JP-ASTRAZENECA-2010SE24306

PATIENT
  Sex: Female
  Weight: 60 kg

DRUGS (1)
  1. BLOPRESS PLUS [Suspect]
     Indication: HYPERTENSION
     Dosage: CANDESARTAN 16 MG PLUS HYDROCHLOROTHIAZIDE 12.5 MG, DAILY
     Route: 048

REACTIONS (1)
  - DYSPNOEA EXERTIONAL [None]
